FAERS Safety Report 16394354 (Version 2)
Quarter: 2019Q2

REPORT INFORMATION
  Report Type: Spontaneous
  Country: US (occurrence: US)
  Receive Date: 20190605
  Receipt Date: 20190607
  Transmission Date: 20190711
  Serious: Yes (Other)
  Sender: FDA-Public Use
  Company Number: US-ELI_LILLY_AND_COMPANY-US201906001100

PATIENT
  Sex: Female

DRUGS (1)
  1. ZYPREXA [Suspect]
     Active Substance: OLANZAPINE
     Indication: DRUG WITHDRAWAL SYNDROME
     Dosage: UNK, UNKNOWN
     Route: 065
     Dates: start: 201209

REACTIONS (1)
  - Weight increased [Unknown]
